FAERS Safety Report 20302583 (Version 1)
Quarter: 2022Q1

REPORT INFORMATION
  Report Type: Spontaneous
  Country: IN (occurrence: IN)
  Receive Date: 20220106
  Receipt Date: 20220106
  Transmission Date: 20220424
  Serious: Yes (Life-Threatening, Hospitalization, Other)
  Sender: FDA-Public Use
  Company Number: IN-PIRAMAL PHARMA LIMITED-2021-PEL-000968

PATIENT

DRUGS (15)
  1. ISOFLURANE [Suspect]
     Active Substance: ISOFLURANE
     Indication: Anaesthesia
     Dosage: 1%, AT FLOW RATE OF 2 L/MIN
  2. MIDAZOLAM [Concomitant]
     Active Substance: MIDAZOLAM
     Indication: Product used for unknown indication
     Dosage: 24 ?G/KG/MINUTE
     Route: 065
  3. VALPROATE [Concomitant]
     Active Substance: VALPROIC ACID
     Indication: Product used for unknown indication
     Dosage: 40 MILLIGRAM/KILOGRAM
     Route: 065
  4. LEVETIRACETAM [Concomitant]
     Active Substance: LEVETIRACETAM
     Indication: Product used for unknown indication
     Dosage: (50?70 MG/KG)
     Route: 065
  5. FOSPHENYTOIN [Concomitant]
     Active Substance: FOSPHENYTOIN
     Indication: Product used for unknown indication
     Dosage: 30PE/KG
     Route: 065
  6. METHYLPREDNISOLONE [Concomitant]
     Active Substance: METHYLPREDNISOLONE
     Indication: Product used for unknown indication
     Dosage: 30MG/KG/DAY FOR 3 DAYS
     Route: 065
  7. KETAMINE [Concomitant]
     Active Substance: KETAMINE
     Indication: Product used for unknown indication
     Dosage: UP TO 6MG/KG/HOUR
     Route: 065
  8. ACYCLOVIR                          /00587301/ [Concomitant]
     Indication: Product used for unknown indication
     Dosage: UNK
     Route: 065
  9. PHENOBARBITONE                     /00023201/ [Concomitant]
     Indication: Seizure
     Dosage: 20 MILLIGRAM/KILOGRAM
     Route: 065
  10. PHENOBARBITONE                     /00023201/ [Concomitant]
     Dosage: 6 MILLIGRAM/KILOGRAM
     Route: 065
  11. TOPIRAMATE [Concomitant]
     Active Substance: TOPIRAMATE
     Indication: Seizure
     Dosage: 10 MILLIGRAM/KILOGRAM FOR 2 DAYS
     Route: 065
  12. TOPIRAMATE [Concomitant]
     Active Substance: TOPIRAMATE
     Dosage: 5 MILLIGRAM/KILOGRAM/DAY
     Route: 065
  13. VIGABATRIN [Concomitant]
     Active Substance: VIGABATRIN
     Indication: Seizure
     Dosage: 50MG/KG
     Route: 065
  14. HUMAN IMMUNOGLOBULIN G [Concomitant]
     Active Substance: HUMAN IMMUNOGLOBULIN G
     Indication: Seizure
     Dosage: 5 DAYS (2 G/KG) FROM DAY 18
     Route: 065
  15. RITUXIMAB [Concomitant]
     Active Substance: RITUXIMAB
     Indication: Product used for unknown indication
     Dosage: 300 MILLIGRAM
     Route: 065

REACTIONS (3)
  - Haemodynamic instability [Unknown]
  - Ileus paralytic [Unknown]
  - Therapeutic product effective for unapproved indication [Unknown]
